FAERS Safety Report 7260017-9 (Version None)
Quarter: 2011Q1

REPORT INFORMATION
  Report Type: 
  Country: None (occurrence: None)
  Receive Date: 20110130
  Receipt Date: 20101017
  Transmission Date: 20110831
  Serious: No
  Sender: FDA-Public Use
  Company Number: US-ABBOTT-10P-163-0679095-00

PATIENT
  Age: 54 Year
  Sex: Female

DRUGS (9)
  1. PREDNISONE [Concomitant]
     Indication: ARTHRITIS
  2. RAMATRIL [Concomitant]
     Indication: BLOOD PRESSURE
  3. METHOTREXAT [Concomitant]
     Indication: PRODUCT USED FOR UNKNOWN INDICATION
  4. TRIESTIQ [Concomitant]
     Indication: DEPRESSION
  5. LOXICAM [Concomitant]
     Indication: ANTIINFLAMMATORY THERAPY
  6. FOLIC ACID [Concomitant]
     Indication: PROPHYLAXIS
  7. NEXIUM [Concomitant]
     Indication: GASTROOESOPHAGEAL REFLUX DISEASE
  8. HUMIRA [Suspect]
     Indication: PSORIATIC ARTHROPATHY
     Dates: start: 20101003
  9. XANAX [Concomitant]
     Indication: DEPRESSION

REACTIONS (4)
  - URINARY TRACT INFECTION [None]
  - ABDOMINAL TENDERNESS [None]
  - ABDOMINAL DISCOMFORT [None]
  - POLLAKIURIA [None]
